FAERS Safety Report 9236426 (Version 1)
Quarter: 2013Q2

REPORT INFORMATION
  Report Type: Spontaneous
  Country: US (occurrence: US)
  Receive Date: 20130417
  Receipt Date: 20130417
  Transmission Date: 20140414
  Serious: Yes (Other)
  Sender: FDA-Public Use
  Company Number: US-ELI_LILLY_AND_COMPANY-US201304002540

PATIENT
  Sex: Male

DRUGS (1)
  1. CYMBALTA [Suspect]
     Indication: DEPRESSION
     Dosage: 30 MG, TID
     Dates: start: 201208

REACTIONS (5)
  - Anger [Recovered/Resolved]
  - Agitation [Recovered/Resolved]
  - Tachyphrenia [Recovered/Resolved]
  - Intentional drug misuse [Unknown]
  - Drug withdrawal syndrome [Recovered/Resolved]
